FAERS Safety Report 7640642-3 (Version None)
Quarter: 2011Q3

REPORT INFORMATION
  Report Type: 
  Country: None (occurrence: None)
  Receive Date: 20110721
  Receipt Date: 20110708
  Transmission Date: 20111222
  Serious: Yes (Life-Threatening)
  Sender: FDA-Public Use
  Company Number: FK201101351

PATIENT
  Age: 52 Year
  Sex: Female

DRUGS (3)
  1. DIAZEPAM [Concomitant]
  2. PROPRANOLOL [Suspect]
     Indication: HYPERTENSION
     Dosage: 40 MG, BID
  3. XYLOCAINE W/ EPINEPHRENE [Suspect]
     Indication: PRODUCT USED FOR UNKNOWN INDICATION
     Dosage: 13 ML , 0.5%

REACTIONS (4)
  - HYPERTENSION [None]
  - CARDIAC ARREST [None]
  - DRUG INTERACTION [None]
  - CONDITION AGGRAVATED [None]
